FAERS Safety Report 15495730 (Version 1)
Quarter: 2018Q4

REPORT INFORMATION
  Report Type: Spontaneous
  Country: GB (occurrence: GB)
  Receive Date: 20181013
  Receipt Date: 20181013
  Transmission Date: 20190205
  Serious: Yes (Other)
  Sender: FDA-Public Use
  Company Number: PHHY2018GB122367

PATIENT
  Age: 82 Year
  Sex: Female

DRUGS (1)
  1. LEVOFLOXACIN. [Suspect]
     Active Substance: LEVOFLOXACIN
     Indication: EMPYEMA
     Route: 048
     Dates: start: 20180831, end: 20180921

REACTIONS (1)
  - Rash maculo-papular [Recovered/Resolved with Sequelae]

NARRATIVE: CASE EVENT DATE: 20180917
